FAERS Safety Report 5103469-2 (Version None)
Quarter: 2006Q3

REPORT INFORMATION
  Report Type: 
  Country: None (occurrence: None)
  Receive Date: 20060913
  Receipt Date: 20060905
  Transmission Date: 20061208
  Serious: Yes (Death, Hospitalization)
  Sender: FDA-Public Use
  Company Number: US-JNJFOC-20060902013

PATIENT
  Age: 30 Year
  Sex: Female

DRUGS (6)
  1. ACETAMINOPHEN [Suspect]
  2. ACETAMINOPHEN [Suspect]
     Indication: SUICIDE ATTEMPT
  3. CLONAZEPAM [Suspect]
     Indication: SUICIDE ATTEMPT
  4. VENLAFAXINE HCL [Suspect]
     Indication: SUICIDE ATTEMPT
  5. PRAZOSIN HCL [Suspect]
     Indication: SUICIDE ATTEMPT
  6. BEER [Suspect]
     Indication: SUICIDE ATTEMPT

REACTIONS (3)
  - COMPLETED SUICIDE [None]
  - MULTI-ORGAN FAILURE [None]
  - MULTIPLE DRUG OVERDOSE INTENTIONAL [None]
